FAERS Safety Report 14848604 (Version 1)
Quarter: 2018Q2

REPORT INFORMATION
  Report Type: Spontaneous
  Country: US (occurrence: US)
  Receive Date: 20180419
  Receipt Date: 20180419
  Transmission Date: 20180711
  Serious: Yes (Disabling)
  Sender: FDA-Public Use
  Company Number: None

PATIENT
  Age: 68 Year
  Sex: Female
  Weight: 63 kg

DRUGS (2)
  1. LORATIDINE [Concomitant]
     Active Substance: LORATADINE
  2. AZITHROMYCIN 250 MG [Suspect]
     Active Substance: AZITHROMYCIN ANHYDROUS
     Indication: INFECTION PROPHYLAXIS
     Dosage: ?          QUANTITY:6 TABLET(S);?
     Route: 048
     Dates: start: 20180412, end: 20180414

REACTIONS (11)
  - Dehydration [None]
  - Syncope [None]
  - Dizziness [None]
  - Dyspnoea [None]
  - Heart rate increased [None]
  - Fall [None]
  - Abdominal discomfort [None]
  - Muscular weakness [None]
  - Tremor [None]
  - Asthma [None]
  - Asthenia [None]

NARRATIVE: CASE EVENT DATE: 20180412
